FAERS Safety Report 23564459 (Version 2)
Quarter: 2024Q2

REPORT INFORMATION
  Report Type: Spontaneous
  Country: US (occurrence: US)
  Receive Date: 20240226
  Receipt Date: 20240401
  Transmission Date: 20240716
  Serious: No
  Sender: FDA-Public Use
  Company Number: US-TEVA-VS-3160672

PATIENT
  Age: 77 Year
  Sex: Female

DRUGS (1)
  1. CLONIDINE [Suspect]
     Active Substance: CLONIDINE
     Indication: Product used for unknown indication
     Dosage: 0.1 MG/24HR
     Route: 062

REACTIONS (3)
  - Product storage error [Unknown]
  - Back pain [Unknown]
  - Emergency care examination normal [Unknown]

NARRATIVE: CASE EVENT DATE: 20240101
